FAERS Safety Report 6579778-7 (Version None)
Quarter: 2010Q1

REPORT INFORMATION
  Report Type: 
  Country: None (occurrence: None)
  Receive Date: 20100212
  Receipt Date: 20100202
  Transmission Date: 20100710
  Serious: Yes (Hospitalization)
  Sender: FDA-Public Use
  Company Number: B0632848A

PATIENT
  Age: 70 Year
  Sex: Male

DRUGS (15)
  1. DILATREND [Suspect]
     Dosage: 12.5MG PER DAY
     Route: 048
  2. DIGITOXIN [Suspect]
     Dosage: .07MG PER DAY
     Route: 048
     Dates: start: 20080625, end: 20080720
  3. ASPIRIN [Concomitant]
     Dates: start: 20000101
  4. PLAVIX [Concomitant]
     Dates: start: 20060401, end: 20080720
  5. MOXONIDINE [Concomitant]
  6. ALLOPURINOL [Concomitant]
  7. UNKNOWN [Concomitant]
     Dates: start: 20080720
  8. NEORECORMON [Concomitant]
  9. ALFACALCIDOL [Concomitant]
  10. TOREM [Concomitant]
  11. DIOVAN [Concomitant]
  12. XIPAMIDE [Concomitant]
  13. PANTOZOL [Concomitant]
  14. EBRANTIL [Concomitant]
  15. METAMIZOL [Concomitant]
     Dates: start: 19900101

REACTIONS (2)
  - GENERAL PHYSICAL HEALTH DETERIORATION [None]
  - NAUSEA [None]
